FAERS Safety Report 5673139-0 (Version None)
Quarter: 2008Q2

REPORT INFORMATION
  Report Type: 
  Country: None (occurrence: None)
  Receive Date: 20080219
  Receipt Date: 20071212
  Transmission Date: 20081010
  Serious: No
  Sender: FDA-Public Use
  Company Number: TPA2007A02496

PATIENT
  Age: 1 Day
  Sex: Male
  Weight: 2.6309 kg

DRUGS (1)
  1. ROZEREM [Suspect]
     Indication: DRUG EXPOSURE DURING PREGNANCY
     Dosage: 8 MG, QHS, TRANSPLACENTAL
     Route: 064
     Dates: start: 20061101

REACTIONS (2)
  - DYSPEPSIA [None]
  - UMBILICAL CORD AROUND NECK [None]
